FAERS Safety Report 25237478 (Version 1)
Quarter: 2025Q2

REPORT INFORMATION
  Report Type: Spontaneous
  Country: US (occurrence: US)
  Receive Date: 20250425
  Receipt Date: 20250425
  Transmission Date: 20250717
  Serious: No
  Sender: ENDO
  Company Number: US-ENDO USA, INC.-2024-002024

PATIENT

DRUGS (1)
  1. FLUVOXAMINE MALEATE [Suspect]
     Active Substance: FLUVOXAMINE MALEATE
     Indication: Obsessive-compulsive disorder
     Route: 065

REACTIONS (4)
  - Illness [Unknown]
  - Impaired quality of life [Unknown]
  - Therapeutic response decreased [Unknown]
  - Product substitution issue [Unknown]
